FAERS Safety Report 25040157 (Version 1)
Quarter: 2025Q1

REPORT INFORMATION
  Report Type: Other
  Country: CA (occurrence: CA)
  Receive Date: 20250305
  Receipt Date: 20250305
  Transmission Date: 20250409
  Serious: Yes (Hospitalization)
  Sender: TOLMAR
  Company Number: CA-TOLMAR, INC.-25CA057170

PATIENT
  Sex: Male

DRUGS (1)
  1. LEUPROLIDE ACETATE [Suspect]
     Active Substance: LEUPROLIDE ACETATE
     Indication: Prostate cancer
     Dosage: 22.5 MILLIGRAM, Q 3 MONTH
     Route: 030

REACTIONS (3)
  - Orthostatic hypertension [Recovering/Resolving]
  - Muscular weakness [Recovering/Resolving]
  - Hypoaesthesia [Recovering/Resolving]
